FAERS Safety Report 8536754-2 (Version None)
Quarter: 2012Q3

REPORT INFORMATION
  Report Type: 
  Country: None (occurrence: None)
  Receive Date: 20120712
  Receipt Date: 20120702
  Transmission Date: 20120928
  Serious: Yes (Other)
  Sender: FDA-Public Use
  Company Number: ACO_30586_2012

PATIENT
  Age: 80 Year
  Sex: Female
  Weight: 61.2 kg

DRUGS (5)
  1. CARVEDILOL [Concomitant]
  2. AMPYRA [Suspect]
     Indication: GAIT DISTURBANCE
     Dosage: 10 MG, QD, ORAL 10 MG, BID, ORAL
     Route: 048
     Dates: start: 20120501, end: 20120101
  3. AMPYRA [Suspect]
     Indication: GAIT DISTURBANCE
     Dosage: 10 MG, QD, ORAL 10 MG, BID, ORAL
     Route: 048
     Dates: start: 20120101
  4. ASPIRIN [Concomitant]
  5. DIOVAN [Concomitant]

REACTIONS (4)
  - ACTIVITIES OF DAILY LIVING IMPAIRED [None]
  - APRAXIA [None]
  - INAPPROPRIATE SCHEDULE OF DRUG ADMINISTRATION [None]
  - ASTHENIA [None]
